FAERS Safety Report 17469134 (Version 1)
Quarter: 2020Q1

REPORT INFORMATION
  Report Type: Spontaneous
  Country: US (occurrence: US)
  Receive Date: 20200227
  Receipt Date: 20200227
  Transmission Date: 20200409
  Serious: No
  Sender: FDA-Public Use
  Company Number: US-SA-2019SA333386

PATIENT
  Age: 24 Year
  Sex: Male

DRUGS (1)
  1. CEREZYME [Suspect]
     Active Substance: IMIGLUCERASE
     Indication: GAUCHER^S DISEASE
     Dosage: 5200 U, QOW (EVERY 2 WEEKS)
     Route: 042
     Dates: start: 201201

REACTIONS (1)
  - Intentional dose omission [Unknown]
